FAERS Safety Report 14631381 (Version 14)
Quarter: 2019Q3

REPORT INFORMATION
  Report Type: Report from Study
  Country: CA (occurrence: CA)
  Receive Date: 20180313
  Receipt Date: 20190829
  Transmission Date: 20191004
  Serious: Yes (Hospitalization, Other)
  Sender: FDA-Public Use
  Company Number: PHHY2017CA195903

PATIENT
  Age: 56 Year
  Sex: Male

DRUGS (9)
  1. COSENTYX [Suspect]
     Active Substance: SECUKINUMAB
     Dosage: 150 MG, QMO (SENSOREADY PEN)
     Route: 058
     Dates: start: 20190529, end: 20190623
  2. COSENTYX [Suspect]
     Active Substance: SECUKINUMAB
     Dosage: 150 MG, QMO
     Route: 058
     Dates: start: 20180313
  3. COSENTYX [Suspect]
     Active Substance: SECUKINUMAB
     Indication: ANKYLOSING SPONDYLITIS
     Dosage: 150 MG, QW
     Route: 058
     Dates: start: 20171205
  4. CELEBREX [Concomitant]
     Active Substance: CELECOXIB
     Indication: PRODUCT USED FOR UNKNOWN INDICATION
     Dosage: UNK
     Route: 065
     Dates: start: 2009
  5. COSENTYX [Suspect]
     Active Substance: SECUKINUMAB
     Dosage: 150 MG, QW
     Route: 058
     Dates: start: 20180102
  6. CELEBREX [Concomitant]
     Active Substance: CELECOXIB
     Dosage: 1 DF, QD (FOR 1 WEEK)
     Route: 065
     Dates: start: 2009
  7. COSENTYX [Suspect]
     Active Substance: SECUKINUMAB
     Dosage: 150 MG, QMO
     Route: 058
     Dates: start: 20180202
  8. VOLTAREN [Concomitant]
     Active Substance: DICLOFENAC SODIUM
     Indication: PRODUCT USED FOR UNKNOWN INDICATION
     Route: 065
  9. COSENTYX [Suspect]
     Active Substance: SECUKINUMAB
     Dosage: 150 MG, QMO
     Route: 058
     Dates: start: 20180523

REACTIONS (21)
  - Musculoskeletal chest pain [Unknown]
  - Cough [Not Recovered/Not Resolved]
  - Headache [Unknown]
  - Musculoskeletal stiffness [Recovering/Resolving]
  - Pneumonia [Unknown]
  - Injection site discomfort [Unknown]
  - Fatigue [Unknown]
  - Neck pain [Unknown]
  - Pain in extremity [Unknown]
  - Skin swelling [Unknown]
  - Arthritis [Unknown]
  - Mass [Recovered/Resolved]
  - Joint swelling [Unknown]
  - Discomfort [Unknown]
  - Nasopharyngitis [Not Recovered/Not Resolved]
  - Secretion discharge [Not Recovered/Not Resolved]
  - Infection [Unknown]
  - Thyroid mass [Unknown]
  - Arthralgia [Unknown]
  - Insomnia [Unknown]
  - Dysstasia [Unknown]

NARRATIVE: CASE EVENT DATE: 20180109
